FAERS Safety Report 6531048-9 (Version None)
Quarter: 2010Q1

REPORT INFORMATION
  Report Type: 
  Country: None (occurrence: None)
  Receive Date: 20100108
  Receipt Date: 20091020
  Transmission Date: 20100710
  Serious: No
  Sender: FDA-Public Use
  Company Number: A0812586A

PATIENT
  Age: 70 Year
  Sex: Female

DRUGS (12)
  1. LOVAZA [Suspect]
     Indication: ARTHRITIS
     Dosage: 2CAPL PER DAY
     Route: 048
     Dates: start: 20080101
  2. LIPITOR [Concomitant]
  3. NEURONTIN [Concomitant]
  4. SYNTHROID [Concomitant]
  5. TEGRETOL [Concomitant]
  6. COLCHICINE [Concomitant]
  7. OMEPRAZOLE [Concomitant]
  8. SUCRALFATE [Concomitant]
  9. METROGEL [Concomitant]
  10. ROBAXIN [Concomitant]
  11. LASIX [Concomitant]
  12. ZYRTEC [Concomitant]

REACTIONS (2)
  - RASH [None]
  - VULVOVAGINAL MYCOTIC INFECTION [None]
